FAERS Safety Report 9458565 (Version 1)
Quarter: 2013Q3

REPORT INFORMATION
  Report Type: Spontaneous
  Country: US (occurrence: None)
  Receive Date: 20130813
  Receipt Date: 20130813
  Transmission Date: 20140515
  Serious: No
  Sender: FDA-Public Use
  Company Number: None

PATIENT
  Sex: Female

DRUGS (1)
  1. PREDNISONE [Suspect]
     Indication: RHEUMATOID ARTHRITIS
     Dates: end: 1990

REACTIONS (6)
  - Meningitis bacterial [None]
  - Mobility decreased [None]
  - Knee arthroplasty [None]
  - Incorrect drug administration duration [None]
  - Maternal exposure during pregnancy [None]
  - Weight increased [None]
